FAERS Safety Report 20595772 (Version 1)
Quarter: 2022Q1

REPORT INFORMATION
  Report Type: Report from Study
  Country: US (occurrence: US)
  Receive Date: 20220315
  Receipt Date: 20220315
  Transmission Date: 20220423
  Serious: Yes (Other)
  Sender: FDA-Public Use
  Company Number: US-MYLANLABS-2022M1019635

PATIENT
  Age: 74 Year
  Sex: Female

DRUGS (2)
  1. PACLITAXEL [Suspect]
     Active Substance: PACLITAXEL
     Indication: Non-small cell lung cancer
     Dosage: 50 MILLIGRAM/SQ. METER, QW, CYCLICAL
     Route: 065
  2. CARBOPLATIN [Suspect]
     Active Substance: CARBOPLATIN
     Indication: Non-small cell lung cancer
     Dosage: UNK, QW, AUC 2; CYCLICAL
     Route: 065

REACTIONS (2)
  - Drug ineffective [Unknown]
  - Eyelid oedema [Recovering/Resolving]
